FAERS Safety Report 6161780-0 (Version None)
Quarter: 2009Q2

REPORT INFORMATION
  Report Type: 
  Country: None (occurrence: None)
  Receive Date: 20090421
  Receipt Date: 20090406
  Transmission Date: 20091009
  Serious: Yes (Other)
  Sender: FDA-Public Use
  Company Number: BR-ROCHE-626420

PATIENT
  Sex: Female
  Weight: 51 kg

DRUGS (2)
  1. ROACUTAN [Suspect]
     Indication: ACNE
     Route: 048
     Dates: start: 20060701, end: 20061201
  2. TRIQUILAR [Concomitant]
     Indication: CONTRACEPTION
     Route: 048
     Dates: start: 20060101, end: 20060101

REACTIONS (1)
  - ABORTION SPONTANEOUS [None]
